FAERS Safety Report 4687718-0 (Version None)
Quarter: 2005Q2

REPORT INFORMATION
  Report Type: 
  Country: None (occurrence: None)
  Receive Date: 20050610
  Receipt Date: 20050601
  Transmission Date: 20051028
  Serious: Yes (Hospitalization)
  Sender: FDA-Public Use
  Company Number: US-SANOFI-SYNTHELABO-A03200501670

PATIENT
  Sex: Male

DRUGS (1)
  1. PLAVIX [Suspect]
     Indication: STENT PLACEMENT
     Route: 048
     Dates: start: 20050509, end: 20050525

REACTIONS (7)
  - HYPERSENSITIVITY [None]
  - INFECTION [None]
  - MALAISE [None]
  - MUSCULAR WEAKNESS [None]
  - MYOSITIS [None]
  - PYREXIA [None]
  - SWELLING [None]
